FAERS Safety Report 7082865-0 (Version None)
Quarter: 2010Q4

REPORT INFORMATION
  Report Type: 
  Country: None (occurrence: None)
  Receive Date: 20101025
  Receipt Date: 20101013
  Transmission Date: 20110411
  Serious: Yes (Other)
  Sender: FDA-Public Use
  Company Number: DSJ-2010-18609

PATIENT
  Age: 63 Year
  Sex: Male

DRUGS (9)
  1. BENICAR HCT [Suspect]
     Indication: HYPERTENSION
     Dosage: 20/12.5 MG (1 IN 1 D), PER ORAL; 40/12.5 MG (1 IN 1 D), PER ORAL
     Route: 048
     Dates: start: 20060101, end: 20100901
  2. BENICAR HCT [Suspect]
     Indication: HYPERTENSION
     Dosage: 20/12.5 MG (1 IN 1 D), PER ORAL; 40/12.5 MG (1 IN 1 D), PER ORAL
     Route: 048
     Dates: start: 20100901
  3. METOPROLOL SUCCINATE [Concomitant]
  4. OMEPRAZOLE [Concomitant]
  5. ACETYLSALICYLIC ACID SRT [Concomitant]
  6. ISOSORBIDE (ISOSORBIDE) (ISOSORBIDE) [Concomitant]
  7. HYDROCHLOROTHIAZIDE [Concomitant]
  8. CLOPIDOGREL (CLOPIDOGREL) (CLOPIDOGREL) [Concomitant]
  9. ROSUVASTATIN (ROSUVASTATIN) (ROSUVASTATIN) [Concomitant]

REACTIONS (3)
  - ANGIOPLASTY [None]
  - BLOOD PRESSURE SYSTOLIC INCREASED [None]
  - DRUG INEFFECTIVE [None]
